FAERS Safety Report 22018100 (Version 2)
Quarter: 2023Q1

REPORT INFORMATION
  Report Type: Report from Study
  Country: CN (occurrence: CN)
  Receive Date: 20230221
  Receipt Date: 20230314
  Transmission Date: 20230418
  Serious: Yes (Hospitalization)
  Sender: FDA-Public Use
  Company Number: CN-JNJFOC-20230228908

PATIENT
  Age: 77 Year
  Sex: Female
  Weight: 54 kg

DRUGS (29)
  1. AMIVANTAMAB [Suspect]
     Active Substance: AMIVANTAMAB
     Indication: Non-small cell lung cancer metastatic
     Route: 042
     Dates: start: 20220713, end: 20230203
  2. CARBOPLATIN [Suspect]
     Active Substance: CARBOPLATIN
     Indication: Non-small cell lung cancer metastatic
     Route: 042
     Dates: start: 20220713, end: 20220917
  3. PEMETREXED [Suspect]
     Active Substance: PEMETREXED
     Indication: Non-small cell lung cancer metastatic
     Route: 042
     Dates: start: 20220713, end: 20221130
  4. CALCIUM CARBONATE\ERGOCALCIFEROL [Concomitant]
     Active Substance: CALCIUM CARBONATE\ERGOCALCIFEROL
     Indication: Mineral supplementation
     Dosage: REPORTED AS CALCIUM CARBONATE D3
     Route: 048
     Dates: start: 20210702
  5. CALCIUM CARBONATE\ERGOCALCIFEROL [Concomitant]
     Active Substance: CALCIUM CARBONATE\ERGOCALCIFEROL
     Route: 048
     Dates: start: 20221110
  6. CELECOXIB [Concomitant]
     Active Substance: CELECOXIB
     Indication: Pain
     Route: 048
     Dates: start: 20220315
  7. OXYCODONE HYDROCHLORIDE [Concomitant]
     Active Substance: OXYCODONE HYDROCHLORIDE
     Indication: Pain
     Route: 048
     Dates: start: 20220614
  8. MINERALS\VITAMINS [Concomitant]
     Active Substance: MINERALS\VITAMINS
     Indication: Vitamin supplementation
     Route: 048
     Dates: start: 20220617
  9. LEUCOGEN [FILGRASTIM] [Concomitant]
     Indication: Platelet count decreased
     Route: 048
     Dates: start: 20220719
  10. LEUCOGEN [FILGRASTIM] [Concomitant]
     Indication: White blood cell count decreased
  11. KANG FU XIN [Concomitant]
     Indication: Mouth haemorrhage
     Route: 050
     Dates: start: 20220725
  12. KANG FU XIN [Concomitant]
     Indication: Stomatitis
  13. RIVAROXABAN [Concomitant]
     Active Substance: RIVAROXABAN
     Indication: Vascular access complication
     Route: 048
     Dates: start: 20220805
  14. RIVAROXABAN [Concomitant]
     Active Substance: RIVAROXABAN
     Route: 048
     Dates: start: 20221110
  15. DI YU SHENG BAI [Concomitant]
     Indication: White blood cell count decreased
     Route: 048
     Dates: start: 20220914
  16. DI YU SHENG BAI [Concomitant]
     Route: 048
     Dates: start: 20221128
  17. MUPIROCIN [Concomitant]
     Active Substance: MUPIROCIN
     Indication: Rash
     Route: 062
     Dates: start: 20220917
  18. RECOMBINANT HUMAN EPIDERMAL GROWTH FACTOR DERIVATIVE FOR EXTERNAL USE, [Concomitant]
     Indication: Rash
     Route: 050
     Dates: start: 20221005
  19. RECOMBINANT HUMAN EPIDERMAL GROWTH FACTOR DERIVATIVE FOR EXTERNAL USE, [Concomitant]
     Indication: Mouth haemorrhage
     Route: 050
     Dates: start: 20221110
  20. POTASSIUM CHLORIDE [Concomitant]
     Active Substance: POTASSIUM CHLORIDE
     Indication: Electrolyte imbalance
     Route: 048
     Dates: start: 20221006
  21. HERBALS [Concomitant]
     Active Substance: HERBALS
     Indication: Blood creatinine increased
     Route: 048
     Dates: start: 20221222
  22. HERBALS [Concomitant]
     Active Substance: HERBALS
     Indication: Renal impairment
  23. JIN SHUI BAO [Concomitant]
     Indication: Blood creatinine increased
     Route: 048
     Dates: start: 20230113, end: 20230113
  24. JIN SHUI BAO [Concomitant]
     Indication: Renal impairment
  25. SHEN KANG [ASTRAGALUS MONGHOLICUS ROOT;CARTHAMUS TINCTORIUS FLOWER;RHE [Concomitant]
     Indication: Blood creatinine increased
     Route: 042
     Dates: start: 20230202, end: 20230207
  26. SHEN KANG [ASTRAGALUS MONGHOLICUS ROOT;CARTHAMUS TINCTORIUS FLOWER;RHE [Concomitant]
     Indication: Renal impairment
  27. BATILOL [Concomitant]
     Active Substance: BATILOL
     Indication: White blood cell count decreased
     Route: 048
     Dates: start: 20221128
  28. BATILOL [Concomitant]
     Active Substance: BATILOL
     Indication: Neutrophil count decreased
  29. CYSTEINE [Concomitant]
     Active Substance: CYSTEINE
     Indication: Prophylaxis
     Route: 042
     Dates: start: 20230203, end: 20230204

REACTIONS (1)
  - Renal impairment [Not Recovered/Not Resolved]

NARRATIVE: CASE EVENT DATE: 20230207
